FAERS Safety Report 8541149-1 (Version None)
Quarter: 2012Q3

REPORT INFORMATION
  Report Type: 
  Country: None (occurrence: None)
  Receive Date: 20120716
  Receipt Date: 20120614
  Transmission Date: 20120928
  Serious: Yes (Other)
  Sender: FDA-Public Use
  Company Number: 2012SA030476

PATIENT
  Age: 50 Year
  Sex: Female
  Weight: 54 kg

DRUGS (1)
  1. GOLD BOND MEDICATED ANTI-ITCH CREAM [Suspect]
     Indication: PRURITUS
     Dosage: ONCE
     Dates: start: 20120428, end: 20120428

REACTIONS (3)
  - VULVOVAGINAL BURNING SENSATION [None]
  - SWELLING [None]
  - PAIN [None]
